FAERS Safety Report 11912624 (Version 1)
Quarter: 2016Q1

REPORT INFORMATION
  Report Type: Spontaneous
  Country: GB (occurrence: GB)
  Receive Date: 20160113
  Receipt Date: 20160113
  Transmission Date: 20160526
  Serious: Yes (Hospitalization)
  Sender: FDA-Public Use
  Company Number: GB-ACCORD-036996

PATIENT
  Age: 87 Year
  Sex: Male

DRUGS (5)
  1. BICALUTAMIDE. [Concomitant]
     Active Substance: BICALUTAMIDE
  2. RAMIPRIL. [Suspect]
     Active Substance: RAMIPRIL
     Indication: HYPERTENSION
     Dosage: DOSE REDUCED TO 5 MG
     Route: 048
     Dates: end: 201106
  3. WARFARIN [Concomitant]
     Active Substance: WARFARIN
     Dosage: OMITTED UNTIL INR STABLE
  4. SIMVASTATIN. [Concomitant]
     Active Substance: SIMVASTATIN
  5. BISOPROLOL [Suspect]
     Active Substance: BISOPROLOL
     Indication: PRODUCT USED FOR UNKNOWN INDICATION

REACTIONS (4)
  - Orthostatic hypotension [Unknown]
  - Loss of consciousness [Recovering/Resolving]
  - Syncope [Recovering/Resolving]
  - International normalised ratio increased [Recovered/Resolved]

NARRATIVE: CASE EVENT DATE: 201105
